FAERS Safety Report 16389898 (Version 1)
Quarter: 2019Q2

REPORT INFORMATION
  Report Type: Spontaneous
  Country: CA (occurrence: CA)
  Receive Date: 20190604
  Receipt Date: 20190604
  Transmission Date: 20190711
  Serious: Yes (Other)
  Sender: FDA-Public Use
  Company Number: CA-NAPPMUNDI-CAN-2019-0010103

PATIENT
  Sex: Female

DRUGS (1)
  1. HYDROMORPH CONTIN [Suspect]
     Active Substance: HYDROMORPHONE
     Indication: PAIN
     Dosage: UNK
     Route: 065

REACTIONS (5)
  - Suicidal ideation [Unknown]
  - Mental impairment [Unknown]
  - Drug tolerance increased [Unknown]
  - Drug dependence [Unknown]
  - Depression [Unknown]
